FAERS Safety Report 7829366-7 (Version None)
Quarter: 2011Q4

REPORT INFORMATION
  Report Type: 
  Country: None (occurrence: None)
  Receive Date: 20111020
  Receipt Date: 20111006
  Transmission Date: 20120403
  Serious: Yes (Other)
  Sender: FDA-Public Use
  Company Number: GB-WATSON-2011-15926

PATIENT
  Age: 60 Year
  Sex: Male

DRUGS (3)
  1. FLUOROURACIL [Suspect]
     Dosage: 250 MG/M2, UNK
     Route: 065
  2. FLUOROURACIL [Suspect]
     Indication: RECTAL CANCER
     Dosage: 300 MG/M2 AS BOLUS INFUSION AT DAYS 1-5
     Route: 065
  3. OXALIPLATIN [Suspect]
     Indication: RECTAL CANCER
     Dosage: 130 MG/M2 AT DAY 1 AS 2-HR INFUSION
     Route: 065

REACTIONS (2)
  - NEUTROPENIA [None]
  - DIFFUSE ALVEOLAR DAMAGE [None]
